FAERS Safety Report 23513251 (Version 2)
Quarter: 2024Q1

REPORT INFORMATION
  Report Type: Report from Study
  Country: BD (occurrence: BD)
  Receive Date: 20240212
  Receipt Date: 20240217
  Transmission Date: 20240410
  Serious: Yes (Death, Other)
  Sender: FDA-Public Use
  Company Number: BD-SANDOZ-SDZ2024BD013714

PATIENT
  Sex: Female
  Weight: 35 kg

DRUGS (2)
  1. ACLASTA [Suspect]
     Active Substance: ZOLEDRONIC ACID
     Indication: Osteoporosis
     Dosage: 1 DOSAGE FORM (5/100-1S)
     Route: 065
  2. ACLASTA [Suspect]
     Active Substance: ZOLEDRONIC ACID
     Dosage: 5 MG, ONCE A YEAR
     Route: 042
     Dates: start: 2008, end: 2021

REACTIONS (1)
  - Death [Fatal]
